FAERS Safety Report 6634297-4 (Version None)
Quarter: 2010Q1

REPORT INFORMATION
  Report Type: 
  Country: None (occurrence: None)
  Receive Date: 20100315
  Receipt Date: 20100306
  Transmission Date: 20100710
  Serious: Yes (Hospitalization)
  Sender: FDA-Public Use
  Company Number: US-SANOFI-AVENTIS-2010SA013300

PATIENT
  Age: 59 Year
  Sex: Female

DRUGS (3)
  1. LANTUS [Suspect]
     Indication: DIABETES MELLITUS
     Dosage: IN AM DOSE:50 UNIT(S)
     Route: 058
  2. SOLOSTAR [Suspect]
  3. HYDROXYUREA [Suspect]

REACTIONS (4)
  - CONDITION AGGRAVATED [None]
  - DIZZINESS [None]
  - VISUAL IMPAIRMENT [None]
  - VOMITING [None]
